FAERS Safety Report 8960523 (Version 2)
Quarter: 2013Q2

REPORT INFORMATION
  Report Type: Spontaneous
  Country: GB (occurrence: None)
  Receive Date: 20121203
  Receipt Date: 20130611
  Transmission Date: 20140414
  Serious: Yes (Life-Threatening)
  Sender: FDA-Public Use
  Company Number: TPA2012A09222

PATIENT
  Age: 70 Year
  Sex: Male

DRUGS (14)
  1. ADENURIC [Suspect]
     Indication: GOUT
     Route: 048
     Dates: start: 20120927
  2. AMLODIPINE (AMLODIPINE) [Concomitant]
  3. CALCIUM LACTATE (CALCIUM LACTATE) [Concomitant]
  4. ENOXAPARIN (ENOXAPARIN) [Concomitant]
  5. FOSTAIR (BECLOMETASONE DIPROPIONATE, FORMOTEROL FUMARATE) [Concomitant]
  6. FUROSEMIDE (FUROSEMIDE) [Concomitant]
  7. LANSOPRAZOLE (LANSOPRAZOLE) [Concomitant]
  8. NEBIVOLOL (NEBIVOLOL) [Concomitant]
  9. OLMESARTAN MEDOXOMIL (OLMESARTAN MEDOXOMIL) [Concomitant]
  10. PARACETAMOL (PARACETAMOL) [Concomitant]
  11. PREAMIPEXOLE (PRAMIPEXOLE) [Concomitant]
  12. PREDNISOLONE (PREDNISOLONE) [Concomitant]
  13. QUININE (QUININE) [Concomitant]
  14. SPIRONOLACTONE (SPIRONOLACTONE) [Concomitant]

REACTIONS (3)
  - Restless legs syndrome [None]
  - Renal failure chronic [None]
  - Cardiac failure [None]
